FAERS Safety Report 8542610-6 (Version None)
Quarter: 2012Q3

REPORT INFORMATION
  Report Type: 
  Country: None (occurrence: None)
  Receive Date: 20120726
  Receipt Date: 20120723
  Transmission Date: 20120928
  Serious: Yes (Death, Hospitalization, Other)
  Sender: FDA-Public Use
  Company Number: US-TEVA-350165USA

PATIENT
  Age: 24 Year
  Sex: Female

DRUGS (4)
  1. TRAZODONE HYDROCHLORIDE [Suspect]
     Indication: PRODUCT USED FOR UNKNOWN INDICATION
     Dosage: POTENTIAL MAXIMUM INGESTION 4.5G
     Route: 048
  2. CITALOPRAM HYDROBROMIDE [Suspect]
     Indication: PRODUCT USED FOR UNKNOWN INDICATION
     Dosage: POTENTIAL MAXIMUM INGESTION 1.8G
     Route: 048
  3. CLONAZEPAM [Suspect]
     Indication: PRODUCT USED FOR UNKNOWN INDICATION
     Dosage: POTENTIAL MAXIMUM INGESTION 90MG
     Route: 048
  4. BUPROPION HCL [Suspect]
     Indication: PRODUCT USED FOR UNKNOWN INDICATION
     Dosage: POTENTIAL MAXIMUM INGESTION 13.5G EXTENDED-RELEASE
     Route: 048

REACTIONS (11)
  - BEZOAR [None]
  - UNRESPONSIVE TO STIMULI [None]
  - GRAND MAL CONVULSION [None]
  - MULTIPLE DRUG OVERDOSE [None]
  - MYOCLONUS [None]
  - CARDIOTOXICITY [None]
  - PULSE ABSENT [None]
  - VENTRICULAR TACHYCARDIA [None]
  - TOXICITY TO VARIOUS AGENTS [None]
  - HYPOTENSION [None]
  - ELECTROCARDIOGRAM QRS COMPLEX PROLONGED [None]
